FAERS Safety Report 4674950-5 (Version None)
Quarter: 2005Q2

REPORT INFORMATION
  Report Type: 
  Country: None (occurrence: None)
  Receive Date: 20050526
  Receipt Date: 20050517
  Transmission Date: 20051028
  Serious: Yes (Hospitalization)
  Sender: FDA-Public Use
  Company Number: 2005062389

PATIENT
  Age: 60 Year
  Sex: Male
  Weight: 136.0791 kg

DRUGS (10)
  1. BEXTRA [Suspect]
     Indication: MYOSITIS
     Dosage: 10 MG (10 MG, 1 IN 1 D), ORAL
     Route: 048
     Dates: start: 20040901
  2. AMIODARONE HCL [Concomitant]
  3. WARFARIN SODIUM [Concomitant]
  4. PRAVACHOL [Concomitant]
  5. POTASSIUM ACETATE [Concomitant]
  6. BUMEX [Concomitant]
  7. ALTACE [Concomitant]
  8. GLYBURIDE [Concomitant]
  9. ATENOLO (ATENOLOL) [Concomitant]
  10. LAMISIL 9TERBINAFINE HYDROCHLORIDE) [Concomitant]

REACTIONS (4)
  - DRUG INEFFECTIVE [None]
  - FUNGAL INFECTION [None]
  - INFECTION [None]
  - MYOSITIS [None]
